FAERS Safety Report 17706248 (Version 2)
Quarter: 2020Q3

REPORT INFORMATION
  Report Type: Spontaneous
  Country: DE (occurrence: DE)
  Receive Date: 20200424
  Receipt Date: 20200918
  Transmission Date: 20201102
  Serious: Yes (Hospitalization)
  Sender: FDA-Public Use
  Company Number: DE-PFIZER INC-2020162626

PATIENT
  Age: 63 Year
  Sex: Male

DRUGS (10)
  1. PANTOPRAZOL [PANTOPRAZOLE] [Concomitant]
     Active Substance: PANTOPRAZOLE
     Dosage: UNK, 1X/DAY (40 MG, 1?0?0?0)
     Route: 048
  2. CLONIDIN?RATIOPHARM [Concomitant]
     Dosage: 150 ?G, 0?0?0.5?0
     Route: 048
  3. SALOFALK [MESALAZINE] [Concomitant]
     Active Substance: MESALAMINE
     Dosage: 1000 MG, 0?1?0?0
  4. IBUPROFEN. [Suspect]
     Active Substance: IBUPROFEN
     Dosage: UNK, 4X/DAY (TAKEN 4X THE DAY BEFORE (01DEC2019))
     Route: 048
     Dates: start: 20191201, end: 20191201
  5. IBUPROFEN. [Suspect]
     Active Substance: IBUPROFEN
     Dosage: SEVERAL TIMES A WEEK
     Route: 048
  6. PREDNISOLON [PREDNISOLONE] [Suspect]
     Active Substance: PREDNISOLONE
     Dosage: 7.5 MG, 1X/DAY
     Route: 048
  7. NALOXONE HYDROCHLORIDE/OXYCODONE HYDROCHLORIDE [Concomitant]
     Active Substance: NALOXONE HYDROCHLORIDE\OXYCODONE HYDROCHLORIDE
     Dosage: 10/20 MG, 2?1?2?0
     Route: 048
  8. CANDESARTAN. [Concomitant]
     Active Substance: CANDESARTAN
     Dosage: 8 MG, 0?0?1?0
     Route: 048
  9. IBUPROFEN. [Suspect]
     Active Substance: IBUPROFEN
     Dosage: UNK, 4X/DAY
     Route: 048
  10. PREGABALIN. [Concomitant]
     Active Substance: PREGABALIN
     Dosage: 200 MG, 1?1?1?0
     Route: 048

REACTIONS (7)
  - General physical health deterioration [Unknown]
  - Fatigue [Unknown]
  - Decreased appetite [Unknown]
  - Tachycardia [Unknown]
  - Vomiting [Unknown]
  - Haematemesis [Unknown]
  - Nausea [Unknown]
